FAERS Safety Report 19098293 (Version 1)
Quarter: 2021Q2

REPORT INFORMATION
  Report Type: Spontaneous
  Country: JP (occurrence: JP)
  Receive Date: 20210406
  Receipt Date: 20210406
  Transmission Date: 20210717
  Serious: Yes (Hospitalization)
  Sender: FDA-Public Use
  Company Number: JP-ASTRAZENECA-2021A264883

PATIENT
  Age: 70 Year
  Sex: Male

DRUGS (2)
  1. TS?1 [Suspect]
     Active Substance: GIMERACIL\OTERACIL\TEGAFUR
     Indication: NON-SMALL CELL LUNG CANCER
     Dosage: DOSE UNKNOWN
     Route: 065
  2. IMFINZI [Suspect]
     Active Substance: DURVALUMAB
     Indication: NON-SMALL CELL LUNG CANCER
     Route: 041

REACTIONS (1)
  - Acute respiratory failure [Unknown]
